FAERS Safety Report 20772041 (Version 1)
Quarter: 2022Q2

REPORT INFORMATION
  Report Type: Spontaneous
  Country: IN (occurrence: IN)
  Receive Date: 20220501
  Receipt Date: 20220501
  Transmission Date: 20220720
  Serious: Yes (Other)
  Sender: FDA-Public Use
  Company Number: IN-PFIZER INC-2019419991

PATIENT
  Age: 58 Year
  Sex: Female

DRUGS (6)
  1. SUTENT [Suspect]
     Active Substance: SUNITINIB MALATE
     Indication: Metastatic renal cell carcinoma
     Dosage: UNK
     Route: 048
     Dates: start: 201909
  2. SUTENT [Suspect]
     Active Substance: SUNITINIB MALATE
     Dosage: 50 MG, CYCLIC (ONCE A DAY, 2WEEKS ON AND 1WEEK OFF)
     Route: 048
     Dates: start: 20190918
  3. SUTENT [Suspect]
     Active Substance: SUNITINIB MALATE
     Dosage: 37.5 MG FOR 2 WEEKS
     Dates: start: 202003
  4. SUTENT [Suspect]
     Active Substance: SUNITINIB MALATE
     Dosage: 37.5 MG, CYCLIC (OD, 1 WEEK ON AND 1 WEEK OFF)
  5. SUTENT [Suspect]
     Active Substance: SUNITINIB MALATE
     Dosage: UNK
     Dates: end: 202006
  6. SUTENT [Suspect]
     Active Substance: SUNITINIB MALATE
     Dosage: UNK
     Dates: start: 202009

REACTIONS (9)
  - Thrombocytopenia [Recovering/Resolving]
  - Neuropathy peripheral [Unknown]
  - Blood thyroid stimulating hormone increased [Recovering/Resolving]
  - Oedema peripheral [Unknown]
  - COVID-19 [Unknown]
  - Haemoglobin decreased [Unknown]
  - Oropharyngeal pain [Unknown]
  - Mucosal inflammation [Unknown]
  - Blood uric acid increased [Unknown]

NARRATIVE: CASE EVENT DATE: 20200601
